FAERS Safety Report 7458175-6 (Version None)
Quarter: 2011Q1

REPORT INFORMATION
  Report Type: 
  Country: None (occurrence: None)
  Receive Date: 20110302
  Receipt Date: 20100827
  Transmission Date: 20110831
  Serious: No
  Sender: FDA-Public Use
  Company Number: 163-21880-07070265

PATIENT
  Age: 75 Year
  Sex: Male

DRUGS (2)
  1. REVLIMID [Suspect]
     Indication: MULTIPLE MYELOMA
     Dosage: DAILY FOR 21 DAYS ON THEN 7 DAYS OFF, PO
     Route: 048
     Dates: start: 20100608
  2. DEXAMETHASONE [Concomitant]

REACTIONS (3)
  - VISION BLURRED [None]
  - RASH [None]
  - EAR DISCOMFORT [None]
